FAERS Safety Report 19434207 (Version 1)
Quarter: 2021Q2

REPORT INFORMATION
  Report Type: Spontaneous
  Country: US (occurrence: US)
  Receive Date: 20210617
  Receipt Date: 20210617
  Transmission Date: 20210717
  Serious: No
  Sender: FDA-Public Use
  Company Number: US-ROCHE-2596735

PATIENT
  Age: 58 Year
  Sex: Male
  Weight: 104.42 kg

DRUGS (3)
  1. LOSARTAN AND HYDROCHLOROTHIAZIDE [Concomitant]
     Active Substance: HYDROCHLOROTHIAZIDE\LOSARTAN POTASSIUM
     Indication: HYPERTENSION
     Dosage: 100MG/12.5MG TAKEN DAILY
     Route: 048
  2. ACTEMRA [Suspect]
     Active Substance: TOCILIZUMAB
     Indication: RHEUMATOID ARTHRITIS
     Dosage: AUTO INJECTOR PEN
     Route: 058
     Dates: start: 2018
  3. DIURIL (UNITED STATES) [Concomitant]
     Indication: HYPERTENSION
     Route: 048

REACTIONS (3)
  - Exposure via skin contact [Unknown]
  - Drug delivery system malfunction [Unknown]
  - No adverse event [Unknown]

NARRATIVE: CASE EVENT DATE: 20200503
